FAERS Safety Report 7281366-4 (Version None)
Quarter: 2011Q1

REPORT INFORMATION
  Report Type: 
  Country: None (occurrence: None)
  Receive Date: 20110208
  Receipt Date: 20110120
  Transmission Date: 20110831
  Serious: No
  Sender: FDA-Public Use
  Company Number: US-B.I. PHARMACEUTICALS,INC./RIDGEFIELD-2011-BP-02107BP

PATIENT
  Sex: Female

DRUGS (3)
  1. MULTAQ [Concomitant]
     Indication: ATRIAL FIBRILLATION
     Dosage: 800 MG
     Route: 048
     Dates: start: 20090801
  2. PRADAXA [Suspect]
     Indication: ATRIAL FIBRILLATION
     Dosage: 300 MG
     Route: 048
     Dates: start: 20101214
  3. DILTIAZEM [Concomitant]
     Indication: HYPERTENSION
     Dosage: 120 MG
     Route: 048

REACTIONS (2)
  - ALOPECIA [None]
  - SKIN DISORDER [None]
